FAERS Safety Report 7242654-0 (Version None)
Quarter: 2011Q1

REPORT INFORMATION
  Report Type: 
  Country: None (occurrence: None)
  Receive Date: 20110125
  Receipt Date: 20110120
  Transmission Date: 20110831
  Serious: Yes (Other)
  Sender: FDA-Public Use
  Company Number: US-AMGEN-USASP2011003965

PATIENT
  Age: 62 Year
  Sex: Female

DRUGS (3)
  1. NPLATE [Suspect]
     Dosage: UNK
     Dates: start: 20070101, end: 20080101
  2. CORTICOSTEROIDS [Concomitant]
     Indication: IDIOPATHIC THROMBOCYTOPENIC PURPURA
  3. NPLATE [Suspect]
     Indication: IDIOPATHIC THROMBOCYTOPENIC PURPURA
     Dates: start: 20100723, end: 20100922

REACTIONS (2)
  - MULTIPLE MYELOMA [None]
  - CHRONIC MYELOMONOCYTIC LEUKAEMIA [None]
